FAERS Safety Report 6235132-9 (Version None)
Quarter: 2009Q2

REPORT INFORMATION
  Report Type: 
  Country: None (occurrence: None)
  Receive Date: 20090615
  Receipt Date: 20090603
  Transmission Date: 20091009
  Serious: Yes (Hospitalization)
  Sender: FDA-Public Use
  Company Number: 2009-01945

PATIENT
  Sex: Female

DRUGS (7)
  1. VELCADE [Suspect]
     Indication: MULTIPLE MYELOMA
     Dosage: 2.1 MG, INTRAVENOUS
     Route: 042
     Dates: start: 20090414
  2. ALLOPURINOL [Concomitant]
  3. OXYCONTIN [Concomitant]
  4. DOMPERIDONE (DOMPERIDONE) [Concomitant]
  5. OXYCODONE HCL [Concomitant]
  6. OMEPRAZOLE [Concomitant]
  7. LEVOTHYROXINE SODIUM [Concomitant]

REACTIONS (4)
  - BACK PAIN [None]
  - CONFUSIONAL STATE [None]
  - RENAL IMPAIRMENT [None]
  - THERAPEUTIC AGENT TOXICITY [None]
